FAERS Safety Report 7255222-1 (Version None)
Quarter: 2011Q1

REPORT INFORMATION
  Report Type: 
  Country: None (occurrence: None)
  Receive Date: 20110129
  Receipt Date: 20100219
  Transmission Date: 20110831
  Serious: No
  Sender: FDA-Public Use
  Company Number: US-ABBOTT-10P-163-0628512-00

PATIENT
  Sex: Female

DRUGS (2)
  1. HUMIRA [Suspect]
     Indication: PSORIATIC ARTHROPATHY
     Dosage: DOSE HELD
     Dates: start: 20090101, end: 20100101
  2. HUMIRA [Suspect]
     Dates: start: 20100115

REACTIONS (5)
  - PYREXIA [None]
  - INFLUENZA [None]
  - RESPIRATORY TRACT CONGESTION [None]
  - CHILLS [None]
  - PAIN [None]
